FAERS Safety Report 21466640 (Version 1)
Quarter: 2022Q4

REPORT INFORMATION
  Report Type: Spontaneous
  Country: US (occurrence: None)
  Receive Date: 20221014
  Receipt Date: 20221014
  Transmission Date: 20230112
  Serious: Yes (Hospitalization)
  Sender: FDA-Public Use
  Company Number: None

PATIENT
  Age: 56 Year
  Sex: Female

DRUGS (8)
  1. AMBRISENTAN [Suspect]
     Active Substance: AMBRISENTAN
     Indication: Pulmonary arterial hypertension
     Dosage: FREQUENCY : TWICE A DAY;?
     Route: 048
     Dates: start: 20181108
  2. ALVESCO HFA [Concomitant]
  3. OMEPRAZOLE [Concomitant]
  4. OFEV [Concomitant]
  5. OXYGEN INTRANASAL [Concomitant]
  6. VIT B-12 [Concomitant]
  7. ASPIRIN [Concomitant]
  8. EMERGEN-C [Concomitant]

REACTIONS (10)
  - Abdominal pain [None]
  - Nausea [None]
  - Vomiting [None]
  - Autoimmune disorder [None]
  - Scleroderma [None]
  - Diarrhoea [None]
  - Intestinal pseudo-obstruction [None]
  - Abdominal pain upper [None]
  - Abdominal pain [None]
  - Abdominal pain [None]

NARRATIVE: CASE EVENT DATE: 20221002
